FAERS Safety Report 6169522-X (Version None)
Quarter: 2009Q2

REPORT INFORMATION
  Report Type: 
  Country: None (occurrence: None)
  Receive Date: 20090428
  Receipt Date: 20090423
  Transmission Date: 20091009
  Serious: Yes (Hospitalization, Other)
  Sender: FDA-Public Use
  Company Number: FR-JNJFOC-20090405560

PATIENT
  Age: 91 Year
  Sex: Male

DRUGS (5)
  1. TAVANIC [Suspect]
     Indication: DRUG USE FOR UNKNOWN INDICATION
     Route: 048
  2. CORTANCYL [Suspect]
     Indication: DRUG USE FOR UNKNOWN INDICATION
     Route: 048
  3. COLCHICINE OPOCALCIUM [Suspect]
     Indication: CHONDROCALCINOSIS
     Route: 048
  4. AMLODIPINE BESYLATE [Suspect]
     Indication: HYPERTENSION
     Route: 048
  5. DAFALGAN [Concomitant]
     Indication: PAIN
     Route: 048

REACTIONS (3)
  - ABDOMINAL PAIN [None]
  - PLATELET COUNT DECREASED [None]
  - RENAL ATROPHY [None]
